FAERS Safety Report 19360327 (Version 1)
Quarter: 2021Q2

REPORT INFORMATION
  Report Type: Spontaneous
  Country: US (occurrence: US)
  Receive Date: 20210601
  Receipt Date: 20210601
  Transmission Date: 20210717
  Serious: No
  Sender: FDA-Public Use
  Company Number: US-PFIZER INC-2021253202

PATIENT
  Age: 65 Year
  Sex: Female
  Weight: 63.5 kg

DRUGS (3)
  1. CYTOMEL [Suspect]
     Active Substance: LIOTHYRONINE SODIUM
     Dosage: 50 UG, (CUTS THEM IN HALF AND THEN IN QUARTERS, 1/4 IN MORNING AND 1/4 LATER IN THE DAY)
  2. CYTOMEL [Suspect]
     Active Substance: LIOTHYRONINE SODIUM
     Indication: HYPOTHYROIDISM
     Dosage: 25 UG, (TAKES 12.5 IN MORNING AND 12.5 LATER IN THE AFTERNOON)
  3. SYNTHROID [Concomitant]
     Active Substance: LEVOTHYROXINE SODIUM
     Dosage: UNK

REACTIONS (9)
  - Frustration tolerance decreased [Unknown]
  - Irritability [Unknown]
  - Overdose [Recovering/Resolving]
  - Tremor [Unknown]
  - Feeling abnormal [Unknown]
  - Intentional product misuse [Unknown]
  - Dizziness [Unknown]
  - Nervousness [Recovering/Resolving]
  - Discomfort [Unknown]

NARRATIVE: CASE EVENT DATE: 20210327
